FAERS Safety Report 24336578 (Version 2)
Quarter: 2024Q4

REPORT INFORMATION
  Report Type: Report from Study
  Country: GB (occurrence: GB)
  Receive Date: 20240919
  Receipt Date: 20241003
  Transmission Date: 20250114
  Serious: Yes (Hospitalization)
  Sender: ROCHE
  Company Number: GB-ROCHE-10000079338

PATIENT
  Age: 37 Year
  Sex: Female

DRUGS (1)
  1. OCREVUS [Suspect]
     Active Substance: OCRELIZUMAB
     Indication: Relapsing-remitting multiple sclerosis
     Dosage: LAST DOSE OF OCREVUS WAS ON THE 13-MAR-2024.
     Route: 042
     Dates: start: 20220629

REACTIONS (3)
  - Seizure [Unknown]
  - Epilepsy [Unknown]
  - Off label use [Unknown]

NARRATIVE: CASE EVENT DATE: 20240321
